FAERS Safety Report 15697943 (Version 1)
Quarter: 2018Q4

REPORT INFORMATION
  Report Type: Other
  Country: ES (occurrence: ES)
  Receive Date: 20181207
  Receipt Date: 20181207
  Transmission Date: 20190205
  Serious: Yes (Hospitalization, Other)
  Sender: FDA-Public Use
  Company Number: ES-MACLEODS PHARMACEUTICALS US LTD-MAC2018019060

PATIENT

DRUGS (4)
  1. ARIPIPRAZOLE. [Suspect]
     Active Substance: ARIPIPRAZOLE
     Dosage: 300 MILLIGRAM, EVERY MONTH, SUSPENSION FOR INJECTION
     Route: 065
     Dates: start: 20151014, end: 20160513
  2. ARIPIPRAZOLE. [Suspect]
     Active Substance: ARIPIPRAZOLE
     Indication: SCHIZOPHRENIA
     Dosage: 400 MILLIGRAM, SUSPENSION FOR INJECTION
     Route: 065
     Dates: start: 20150616, end: 20150915
  3. ARIPIPRAZOLE. [Suspect]
     Active Substance: ARIPIPRAZOLE
     Dosage: 200 MILLIGRAM, SUSPENSION FOR INJECTION
     Route: 065
     Dates: start: 20160614
  4. ARIPIPRAZOLE. [Suspect]
     Active Substance: ARIPIPRAZOLE
     Indication: PRODUCT USED FOR UNKNOWN INDICATION
     Dosage: 15 MILLIGRAM, QD, TABLET
     Route: 048
     Dates: start: 20150610, end: 20150630

REACTIONS (5)
  - Prescribed underdose [Unknown]
  - Drug intolerance [Recovered/Resolved]
  - Ill-defined disorder [Unknown]
  - Weight increased [Not Recovered/Not Resolved]
  - Hospitalisation [Unknown]

NARRATIVE: CASE EVENT DATE: 20150610
